FAERS Safety Report 5826226-8 (Version None)
Quarter: 2008Q3

REPORT INFORMATION
  Report Type: 
  Country: None (occurrence: None)
  Receive Date: 20080723
  Receipt Date: 20080710
  Transmission Date: 20090109
  Serious: Yes (Disabling, Other)
  Sender: FDA-Public Use
  Company Number: 2008S1000091

PATIENT
  Age: 66 Year
  Sex: Male
  Weight: 86.9999 kg

DRUGS (10)
  1. ACITRETIN [Suspect]
     Indication: ECZEMA
     Dosage: 10 MG;QD;PO; 30 MG;QD;PO; QD;PO
     Route: 048
     Dates: start: 19990125, end: 19990201
  2. ACITRETIN [Suspect]
     Indication: PSORIASIS
     Dosage: 10 MG;QD;PO; 30 MG;QD;PO; QD;PO
     Route: 048
     Dates: start: 19990125, end: 19990201
  3. ACITRETIN [Suspect]
     Indication: ECZEMA
     Dosage: 10 MG;QD;PO; 30 MG;QD;PO; QD;PO
     Route: 048
     Dates: end: 20010424
  4. ACITRETIN [Suspect]
     Indication: PSORIASIS
     Dosage: 10 MG;QD;PO; 30 MG;QD;PO; QD;PO
     Route: 048
     Dates: end: 20010424
  5. ACITRETIN [Suspect]
     Indication: ECZEMA
     Dosage: 10 MG;QD;PO; 30 MG;QD;PO; QD;PO
     Route: 048
     Dates: start: 19990201
  6. ACITRETIN [Suspect]
     Indication: PSORIASIS
     Dosage: 10 MG;QD;PO; 30 MG;QD;PO; QD;PO
     Route: 048
     Dates: start: 19990201
  7. ASPIRIN [Concomitant]
  8. METOBETA [Concomitant]
  9. ENABETA [Concomitant]
  10. BETA BLOCKING AGENTS [Concomitant]

REACTIONS (9)
  - ALOPECIA [None]
  - ALOPECIA TOTALIS [None]
  - HAIR COLOUR CHANGES [None]
  - MENTAL DISORDER [None]
  - MYOCARDIAL INFARCTION [None]
  - NAIL BED INFECTION [None]
  - PURULENCE [None]
  - SKIN ATROPHY [None]
  - TENDERNESS [None]
